FAERS Safety Report 10014122 (Version 1)
Quarter: 2014Q1

REPORT INFORMATION
  Report Type: Spontaneous
  Country: US (occurrence: US)
  Receive Date: 20140317
  Receipt Date: 20140317
  Transmission Date: 20141002
  Serious: No
  Sender: FDA-Public Use
  Company Number: US-BIOGENIDEC-2014BI023503

PATIENT
  Age: 41 Year
  Sex: Female

DRUGS (1)
  1. TYSABRI [Suspect]
     Indication: MULTIPLE SCLEROSIS
     Route: 042
     Dates: start: 20140228

REACTIONS (5)
  - Abdominal pain upper [Unknown]
  - Ear pruritus [Unknown]
  - Hypersensitivity [Unknown]
  - Nausea [Unknown]
  - Blood pressure decreased [Unknown]
